FAERS Safety Report 6416741-0 (Version None)
Quarter: 2009Q4

REPORT INFORMATION
  Report Type: 
  Country: None (occurrence: None)
  Receive Date: 20091027
  Receipt Date: 20091014
  Transmission Date: 20100525
  Serious: Yes (Hospitalization)
  Sender: FDA-Public Use
  Company Number: FR-GENENTECH-287566

PATIENT
  Sex: Male

DRUGS (4)
  1. RITUXIMAB [Suspect]
     Indication: DIFFUSE LARGE B-CELL LYMPHOMA
     Dosage: 690 MG, QD
     Route: 041
     Dates: start: 20090308, end: 20090622
  2. CYTARABINE [Suspect]
     Indication: MANTLE CELL LYMPHOMA
     Dosage: 3680 MG, UNK
     Route: 041
     Dates: start: 20090305, end: 20090622
  3. CISPLATIN [Suspect]
     Indication: MANTLE CELL LYMPHOMA
     Dosage: 184 MG, UNK
     Route: 041
     Dates: start: 20090306, end: 20090422
  4. CARBOPLATIN [Suspect]
     Indication: MANTLE CELL LYMPHOMA
     Dosage: 520 MG, UNK
     Route: 041
     Dates: start: 20090512, end: 20090622

REACTIONS (2)
  - FEBRILE BONE MARROW APLASIA [None]
  - RENAL FAILURE [None]
